FAERS Safety Report 12774759 (Version 1)
Quarter: 2016Q3

REPORT INFORMATION
  Report Type: Spontaneous
  Country: US (occurrence: US)
  Receive Date: 20160921
  Receipt Date: 20160921
  Transmission Date: 20161109
  Serious: No
  Sender: FDA-Public Use
  Company Number: None

PATIENT
  Age: 44 Year
  Sex: Male

DRUGS (1)
  1. COSENTYX [Suspect]
     Active Substance: SECUKINUMAB
     Indication: PRODUCT USED FOR UNKNOWN INDICATION
     Dosage: COSENTYX 150MG - SUBCUTANEOUS - Q4WEEKS
     Route: 058
     Dates: start: 20160823

REACTIONS (2)
  - Gingival swelling [None]
  - Swelling face [None]
